FAERS Safety Report 20489226 (Version 3)
Quarter: 2022Q1

REPORT INFORMATION
  Report Type: Report from Study
  Country: US (occurrence: US)
  Receive Date: 20220218
  Receipt Date: 20220318
  Transmission Date: 20220423
  Serious: Yes (Death, Hospitalization, Other)
  Sender: FDA-Public Use
  Company Number: US-HBP-2022US025048

PATIENT
  Age: 83 Year
  Sex: Male

DRUGS (4)
  1. VALCHLOR [Suspect]
     Active Substance: MECHLORETHAMINE
     Indication: Cutaneous T-cell lymphoma
     Dosage: THIN FILM, 2/WEEK
     Route: 061
     Dates: start: 20220126
  2. VALCHLOR [Suspect]
     Active Substance: MECHLORETHAMINE
     Dosage: THIN FILM, THREE TIMES A WEEK FOR ANOTHER TWO WEEKS, THEN FOUR TIMES A WEEK FOR ANOTHER TWO WEEKS AN
     Route: 061
     Dates: end: 2022
  3. METHOTREXATE [Suspect]
     Active Substance: METHOTREXATE
     Indication: Cutaneous T-cell lymphoma
     Dosage: UNK, UNKNOWN
  4. FOLIC ACID [Suspect]
     Active Substance: FOLIC ACID
     Indication: Cutaneous T-cell lymphoma
     Dosage: UNK, UNKNOWN
     Route: 061

REACTIONS (4)
  - Renal failure [Fatal]
  - Urinary retention [Unknown]
  - Off label use [Unknown]
  - Intentional dose omission [Unknown]

NARRATIVE: CASE EVENT DATE: 20220201
